FAERS Safety Report 17527505 (Version 1)
Quarter: 2020Q1

REPORT INFORMATION
  Report Type: Spontaneous
  Country: US (occurrence: US)
  Receive Date: 20200311
  Receipt Date: 20200311
  Transmission Date: 20200409
  Serious: Yes (Other)
  Sender: FDA-Public Use
  Company Number: US-JNJFOC-20200244320

PATIENT
  Sex: Female
  Weight: 58.11 kg

DRUGS (4)
  1. REMICADE [Suspect]
     Active Substance: INFLIXIMAB
     Route: 042
     Dates: start: 201911
  2. REMICADE [Suspect]
     Active Substance: INFLIXIMAB
     Indication: CROHN^S DISEASE
     Route: 042
  3. BENADRYL [Concomitant]
     Active Substance: DIPHENHYDRAMINE HYDROCHLORIDE
     Dates: start: 201910
  4. NICOTINE. [Concomitant]
     Active Substance: NICOTINE
     Route: 048

REACTIONS (18)
  - Vaginal discharge [Not Recovered/Not Resolved]
  - Swelling [Not Recovered/Not Resolved]
  - Breast swelling [Not Recovered/Not Resolved]
  - Neuralgia [Not Recovered/Not Resolved]
  - Rash [Not Recovered/Not Resolved]
  - Erythema [Unknown]
  - Lymphadenopathy [Not Recovered/Not Resolved]
  - Abnormal loss of weight [Not Recovered/Not Resolved]
  - Vision blurred [Recovered/Resolved]
  - Blindness [Recovered/Resolved]
  - Exophthalmos [Recovered/Resolved]
  - Wheezing [Unknown]
  - Visual impairment [Recovered/Resolved]
  - Head discomfort [Not Recovered/Not Resolved]
  - Musculoskeletal chest pain [Recovering/Resolving]
  - Skin lesion [Not Recovered/Not Resolved]
  - Decreased appetite [Unknown]
  - Eye infection [Unknown]

NARRATIVE: CASE EVENT DATE: 2019
